FAERS Safety Report 5918274-4 (Version None)
Quarter: 2008Q4

REPORT INFORMATION
  Report Type: 
  Country: None (occurrence: None)
  Receive Date: 20081010
  Receipt Date: 20080930
  Transmission Date: 20090506
  Serious: Yes (Hospitalization)
  Sender: FDA-Public Use
  Company Number: WAES 0809USA04552

PATIENT
  Age: 56 Year
  Sex: Male
  Weight: 86.637 kg

DRUGS (10)
  1. ZOCOR [Suspect]
     Dosage: PO
     Route: 048
     Dates: start: 20080101
  2. ENBREL [Suspect]
     Indication: PSORIASIS
     Dosage: 50 MG/2XW/SC; 50 MG/WKY/SC
     Route: 058
     Dates: start: 20080201, end: 20080401
  3. ENBREL [Suspect]
     Indication: PSORIASIS
     Dosage: 50 MG/2XW/SC; 50 MG/WKY/SC
     Route: 058
     Dates: start: 20080424, end: 20080711
  4. IBUHEXAL UNK [Suspect]
     Dates: start: 19960701, end: 20080101
  5. CANESTEN HC [Concomitant]
  6. CLONISTADA [Concomitant]
  7. MICARDIS [Concomitant]
  8. SPALT LIQUA [Concomitant]
  9. TRIAMPUR COMPOSITIUM [Concomitant]
  10. METHOTREXATE [Concomitant]

REACTIONS (1)
  - HEPATITIS TOXIC [None]
